FAERS Safety Report 6425948-8 (Version None)
Quarter: 2009Q4

REPORT INFORMATION
  Report Type: 
  Country: None (occurrence: None)
  Receive Date: 20091103
  Receipt Date: 20091103
  Transmission Date: 20100525
  Serious: No
  Sender: FDA-Public Use
  Company Number: None

PATIENT

DRUGS (1)
  1. CALCIFEROL DROPS 8000 USP -0.2 MG- PER ML SCHWARZ PHARMA [Suspect]

REACTIONS (2)
  - MEDICATION ERROR [None]
  - PRODUCT DROPPER ISSUE [None]
